FAERS Safety Report 23419633 (Version 1)
Quarter: 2024Q1

REPORT INFORMATION
  Report Type: Other
  Country: GR (occurrence: None)
  Receive Date: 20240118
  Receipt Date: 20240118
  Transmission Date: 20240409
  Serious: Yes (Other)
  Sender: FDA-Public Use
  Company Number: GR-AMGEN-GRCSP2023234035

PATIENT
  Age: 72 Year
  Sex: Female

DRUGS (10)
  1. BEVACIZUMAB [Suspect]
     Active Substance: BEVACIZUMAB
     Indication: Ovarian cancer
     Dosage: UNK
     Route: 065
     Dates: start: 202107, end: 202111
  2. OLAPARIB [Concomitant]
     Active Substance: OLAPARIB
     Dosage: UNK
     Dates: start: 202112, end: 202205
  3. GEMCITABINE [Concomitant]
     Active Substance: GEMCITABINE
     Dosage: UNK
  4. CARBOPLATIN [Concomitant]
     Active Substance: CARBOPLATIN
     Dosage: UNK
  5. CARBOPLATIN [Concomitant]
     Active Substance: CARBOPLATIN
     Dates: start: 201910, end: 202001
  6. CARBOPLATIN [Concomitant]
     Active Substance: CARBOPLATIN
     Dates: start: 202107, end: 202111
  7. PACLITAXEL [Concomitant]
     Active Substance: PACLITAXEL
     Dates: end: 202308
  8. PACLITAXEL [Concomitant]
     Active Substance: PACLITAXEL
     Dates: start: 202107, end: 202111
  9. PACLITAXEL [Concomitant]
     Active Substance: PACLITAXEL
     Dates: start: 201910, end: 202001
  10. LETROZOLE [Concomitant]
     Active Substance: LETROZOLE

REACTIONS (1)
  - Ovarian cancer metastatic [Unknown]

NARRATIVE: CASE EVENT DATE: 20220601
